FAERS Safety Report 4703740-X (Version None)
Quarter: 2005Q2

REPORT INFORMATION
  Report Type: 
  Country: None (occurrence: None)
  Receive Date: 20050628
  Receipt Date: 20050615
  Transmission Date: 20051028
  Serious: Yes (Hospitalization)
  Sender: FDA-Public Use
  Company Number: HQ5443220NOV2002

PATIENT
  Age: 49 Year
  Sex: Male
  Weight: 100.7 kg

DRUGS (2)
  1. RAPAMUNE [Suspect]
     Indication: RENAL TRANSPLANT
     Dosage: 10 MG 1X PER 1 DAY, ORAL
     Route: 048
     Dates: start: 20020805, end: 20021119
  2. RAPAMUNE [Suspect]
     Indication: RENAL TRANSPLANT
     Dosage: 12 MG 1X PER 1 DAY, ORAL
     Route: 048
     Dates: start: 20021120

REACTIONS (8)
  - COUGH [None]
  - DIARRHOEA [None]
  - GASTROOESOPHAGEAL REFLUX DISEASE [None]
  - NAUSEA [None]
  - URINARY TRACT INFECTION ENTEROCOCCAL [None]
  - VIRAL INFECTION [None]
  - VOCAL CORD INFLAMMATION [None]
  - VOMITING [None]
